FAERS Safety Report 6495439-7 (Version None)
Quarter: 2009Q4

REPORT INFORMATION
  Report Type: 
  Country: None (occurrence: None)
  Receive Date: 20091214
  Receipt Date: 20090623
  Transmission Date: 20100525
  Serious: No
  Sender: FDA-Public Use
  Company Number: US-BRISTOL-MYERS SQUIBB COMPANY-14676936

PATIENT
  Sex: Female

DRUGS (3)
  1. ABILIFY [Suspect]
     Indication: MAJOR DEPRESSION
     Dosage: DOSE REDUCED TO 7.5MG QD
  2. CONCERTA [Concomitant]
  3. WELLBUTRIN [Concomitant]

REACTIONS (2)
  - MICTURITION URGENCY [None]
  - POLLAKIURIA [None]
